FAERS Safety Report 12130846 (Version 2)
Quarter: 2016Q2

REPORT INFORMATION
  Report Type: Spontaneous
  Country: US (occurrence: US)
  Receive Date: 20160301
  Receipt Date: 20160401
  Transmission Date: 20160815
  Serious: No
  Sender: FDA-Public Use
  Company Number: US-JNJFOC-20160212649

PATIENT
  Sex: Male

DRUGS (1)
  1. XARELTO [Suspect]
     Active Substance: RIVAROXABAN
     Indication: MUSCULOSKELETAL DISORDER
     Route: 048

REACTIONS (4)
  - Product shape issue [Unknown]
  - Drug dose omission [Unknown]
  - Product use issue [Unknown]
  - Off label use [Unknown]
